FAERS Safety Report 24190990 (Version 3)
Quarter: 2024Q3

REPORT INFORMATION
  Report Type: Spontaneous
  Country: JP (occurrence: JP)
  Receive Date: 20240808
  Receipt Date: 20240924
  Transmission Date: 20241017
  Serious: Yes (Hospitalization)
  Sender: BRISTOL MYERS SQUIBB
  Company Number: JP-TAIHO-2024-007394

PATIENT
  Age: 80 Year
  Sex: Male

DRUGS (6)
  1. ABRAXANE [Suspect]
     Active Substance: PACLITAXEL
     Indication: Squamous cell carcinoma
     Dosage: AT A DOSE REDUCED BY 1 LEVEL, DETAILS NOT REPORTED, CYCLE 2
     Route: 041
     Dates: start: 2020
  2. ABRAXANE [Suspect]
     Active Substance: PACLITAXEL
     Dosage: AT A DOSE REDUCED BY 1 LEVEL, DETAILS NOT REPORTED, CYCLE 3
     Route: 041
  3. CARBOPLATIN [Suspect]
     Active Substance: CARBOPLATIN
     Indication: Squamous cell carcinoma
     Dosage: NI, CYCLE 2
     Route: 041
     Dates: start: 2020
  4. CARBOPLATIN [Suspect]
     Active Substance: CARBOPLATIN
     Dosage: NI, CYCLE3
     Route: 041
  5. PEMBROLIZUMAB [Suspect]
     Active Substance: PEMBROLIZUMAB
     Indication: Squamous cell carcinoma
     Dosage: NI, CYCLE 2
     Route: 041
     Dates: start: 2020
  6. PEMBROLIZUMAB [Suspect]
     Active Substance: PEMBROLIZUMAB
     Dosage: NI, CYCLE 3
     Route: 041

REACTIONS (5)
  - Neutrophil count decreased [Recovered/Resolved]
  - Dehydration [Recovered/Resolved]
  - Malaise [Unknown]
  - Movement disorder [Unknown]
  - Off label use [Unknown]
